FAERS Safety Report 21267885 (Version 1)
Quarter: 2022Q3

REPORT INFORMATION
  Report Type: Spontaneous
  Country: US (occurrence: US)
  Receive Date: 20220829
  Receipt Date: 20220829
  Transmission Date: 20221027
  Serious: Yes (Other)
  Sender: FDA-Public Use
  Company Number: US-PFIZER INC-PV202200051159

PATIENT
  Sex: Male

DRUGS (2)
  1. DILANTIN [Interacting]
     Active Substance: PHENYTOIN
     Dosage: UNK
  2. CAPLYTA [Interacting]
     Active Substance: LUMATEPERONE
     Dosage: 42 MG

REACTIONS (3)
  - Drug interaction [Unknown]
  - Convulsive threshold lowered [Unknown]
  - Seizure [Unknown]
